FAERS Safety Report 8560384-X (Version None)
Quarter: 2012Q3

REPORT INFORMATION
  Report Type: 
  Country: None (occurrence: None)
  Receive Date: 20120802
  Receipt Date: 20110222
  Transmission Date: 20120928
  Serious: Yes (Other)
  Sender: FDA-Public Use
  Company Number: US-BAYER-200931462NA

PATIENT
  Age: 35 Year
  Sex: Female
  Weight: 51 kg

DRUGS (4)
  1. YAZ [Suspect]
     Indication: ORAL CONTRACEPTION
     Route: 048
     Dates: start: 20070127, end: 20070519
  2. ANTIBIOTICS [Concomitant]
     Route: 065
  3. YAZ [Suspect]
     Indication: PREMENSTRUAL SYNDROME
  4. NSAID'S [Concomitant]
     Route: 065

REACTIONS (11)
  - SYNCOPE [None]
  - DYSPNOEA EXERTIONAL [None]
  - DYSPNOEA [None]
  - DEEP VEIN THROMBOSIS [None]
  - DIZZINESS [None]
  - PALPITATIONS [None]
  - DILATATION VENTRICULAR [None]
  - CHEST PAIN [None]
  - TRICUSPID VALVE INCOMPETENCE [None]
  - PULMONARY EMBOLISM [None]
  - PULMONARY HYPERTENSION [None]
